FAERS Safety Report 15656723 (Version 1)
Quarter: 2018Q4

REPORT INFORMATION
  Report Type: Report from Study
  Country: None (occurrence: US)
  Receive Date: 20181126
  Receipt Date: 20181126
  Transmission Date: 20190205
  Serious: Yes (Hospitalization)
  Sender: FDA-Public Use
  Company Number: US-ABBVIE-18K-163-2434684-00

PATIENT
  Age: 56 Year
  Sex: Female

DRUGS (1)
  1. HUMIRA [Suspect]
     Active Substance: ADALIMUMAB
     Indication: CROHN^S DISEASE
     Route: 058
     Dates: end: 2018

REACTIONS (4)
  - Pneumonia [Recovering/Resolving]
  - Weight decreased [Recovering/Resolving]
  - Gastric stenosis [Not Recovered/Not Resolved]
  - Asthma [Recovering/Resolving]

NARRATIVE: CASE EVENT DATE: 201803
